FAERS Safety Report 9993342 (Version 2)
Quarter: 2014Q2

REPORT INFORMATION
  Report Type: Spontaneous
  Country: CA (occurrence: CA)
  Receive Date: 20140310
  Receipt Date: 20140425
  Transmission Date: 20141212
  Serious: Yes (Life-Threatening, Hospitalization, Other)
  Sender: FDA-Public Use
  Company Number: CA-PFIZER INC-2014067258

PATIENT
  Age: 60 Year
  Sex: Female
  Weight: 66.67 kg

DRUGS (13)
  1. AZITHROMYCIN [Suspect]
     Indication: PHARYNGITIS
     Dosage: 250 MG, 1X/DAY FOR 5 DAYS
     Route: 048
     Dates: start: 20121208, end: 20121212
  2. NORVASC [Concomitant]
     Dosage: 10 MG, DAILY
  3. VALSARTAN/ HCTZ [Concomitant]
     Dosage: 1 DF OF 160/12.5MG DAILY
  4. NOVORAPID [Concomitant]
     Dosage: UNK
  5. LANTUS [Concomitant]
     Dosage: UNK
  6. PREDNISONE [Concomitant]
     Dosage: 30 MG, DAILY
     Dates: start: 20120110
  7. PREDNISONE [Concomitant]
     Dosage: 10 MG, DAILY
  8. TRAVATAN Z [Concomitant]
     Dosage: 1 GTT AT BEDTIME
  9. SALBUTAMOL [Concomitant]
     Dosage: UNK
  10. COLACE [Concomitant]
     Dosage: 2X 100MG, DAILY, AS NEEDED
  11. ZANTAC [Concomitant]
     Dosage: 150 MG, 2X/DAY
  12. VITAMIN D [Concomitant]
     Dosage: 10000 IU, WEEKLY
  13. CALCIUM [Concomitant]
     Dosage: 500 MG, 2X/DAY

REACTIONS (1)
  - Drug reaction with eosinophilia and systemic symptoms [Recovered/Resolved]
